FAERS Safety Report 9170241 (Version 1)
Quarter: 2013Q1

REPORT INFORMATION
  Report Type: Spontaneous
  Country: US (occurrence: None)
  Receive Date: 20130315
  Receipt Date: 20130315
  Transmission Date: 20140127
  Serious: Yes (Disabling)
  Sender: FDA-Public Use
  Company Number: None

PATIENT
  Age: 71 Year
  Sex: Female
  Weight: 68.04 kg

DRUGS (4)
  1. SIMVASTATIN 20 MG [Suspect]
  2. LISINOPRIL 10 MG [Suspect]
  3. LIPITOR [Suspect]
  4. LOVASTATIN [Suspect]

REACTIONS (3)
  - Visual impairment [None]
  - Blindness [None]
  - Eye disorder [None]
